FAERS Safety Report 19780612 (Version 1)
Quarter: 2021Q3

REPORT INFORMATION
  Report Type: Spontaneous
  Country: IL (occurrence: IL)
  Receive Date: 20210902
  Receipt Date: 20210902
  Transmission Date: 20211014
  Serious: Yes (Hospitalization)
  Sender: FDA-Public Use
  Company Number: IL-BEIGENE USA INC-BGN-2021-003860

PATIENT

DRUGS (1)
  1. BRUKINSA [Suspect]
     Active Substance: ZANUBRUTINIB
     Indication: WALDENSTROM^S MACROGLOBULINAEMIA
     Dosage: UNK
     Route: 048

REACTIONS (3)
  - Gastrointestinal haemorrhage [Recovering/Resolving]
  - Off label use [Unknown]
  - Haemoglobin decreased [Recovering/Resolving]
